FAERS Safety Report 9717375 (Version 3)
Quarter: 2014Q1

REPORT INFORMATION
  Report Type: Spontaneous
  Country: DE (occurrence: None)
  Receive Date: 20131125
  Receipt Date: 20140102
  Transmission Date: 20141002
  Serious: Yes (Life-Threatening, Hospitalization, Congenital Anomaly, Other)
  Sender: FDA-Public Use
  Company Number: AUR-APL-2013-09714

PATIENT
  Age: 1 Day
  Sex: Male
  Weight: 2.8 kg

DRUGS (7)
  1. LAMOTRIGINE [Suspect]
     Indication: EPILEPSY
     Dosage: (BEGINNING OF PREGNANCY AT 2 X 50 MG AND IN THE END AT 2 X 150 MG)
     Route: 064
     Dates: start: 20120211, end: 20121029
  2. EPIRUBICIN [Suspect]
     Indication: BREAST CANCER
     Dosage: TWICE DURING PREGNANCY 14.9 AND 05.10
     Route: 064
     Dates: start: 20120914, end: 20121005
  3. FOLSAURE [Concomitant]
  4. FILGRASTIM (FILGRASTIM) [Concomitant]
  5. DEXAMETHASONE (DEXAMETHASONE) [Concomitant]
  6. ONDANSETRON (ONDANSETRON) [Concomitant]
  7. CYCLOPHOSPHAMIDE [Suspect]
     Indication: BREAST CANCER
     Dosage: TWICE DURING PREGNANCY 14.9 AND 05.10
     Route: 064
     Dates: start: 20120914, end: 20121005

REACTIONS (9)
  - Premature rupture of membranes [None]
  - Maternal drugs affecting foetus [None]
  - Caesarean section [None]
  - Hypospadias [None]
  - Pulmonary artery stenosis [None]
  - Neonatal respiratory distress syndrome [None]
  - Neonatal hypotension [None]
  - Atrial septal defect [None]
  - Premature baby [None]
